FAERS Safety Report 18148509 (Version 1)
Quarter: 2020Q3

REPORT INFORMATION
  Report Type: Spontaneous
  Country: IE (occurrence: IE)
  Receive Date: 20200814
  Receipt Date: 20200814
  Transmission Date: 20201103
  Serious: Yes (Other)
  Sender: FDA-Public Use
  Company Number: IE-AUROBINDO-AUR-APL-2020-038678

PATIENT
  Age: 57 Year
  Sex: Female

DRUGS (3)
  1. FLUPENTIXOL DECANOATE [Suspect]
     Active Substance: FLUPENTIXOL DECANOATE
     Indication: SCHIZOAFFECTIVE DISORDER
     Dosage: 40 MILLIGRAM, EVERY 2 WEEKS
     Route: 030
     Dates: end: 201409
  2. CLOZAPINE. [Concomitant]
     Active Substance: CLOZAPINE
     Indication: SCHIZOAFFECTIVE DISORDER
     Dosage: UNK, INCREASED OVER THE COURSE OF 6 WEEKS TO 350 MG/DAY
     Route: 065
     Dates: start: 201409
  3. OLANZAPINE. [Suspect]
     Active Substance: OLANZAPINE
     Indication: SCHIZOAFFECTIVE DISORDER
     Dosage: 20 MILLIGRAM, BY NIGHT (NOCTE)
     Route: 065

REACTIONS (8)
  - Poverty of speech [Recovered/Resolved]
  - Parkinsonism [Unknown]
  - Depressed mood [Recovered/Resolved]
  - Persecutory delusion [Recovered/Resolved]
  - Apathy [Recovered/Resolved]
  - Social avoidant behaviour [Recovered/Resolved]
  - Dystonia [Unknown]
  - Product use in unapproved indication [Unknown]
